FAERS Safety Report 9092749 (Version 1)
Quarter: 2013Q1

REPORT INFORMATION
  Report Type: Spontaneous
  Country: US (occurrence: US)
  Receive Date: 20130131
  Receipt Date: 20130131
  Transmission Date: 20140127
  Serious: No
  Sender: FDA-Public Use
  Company Number: US-ABBOTT-12P-163-1003033-00

PATIENT
  Age: 29 Year
  Sex: 0

DRUGS (1)
  1. HUMIRA [Suspect]
     Indication: PRODUCT USED FOR UNKNOWN INDICATION
     Dosage: TOOK IT FOR 2 YEARS

REACTIONS (4)
  - Renal cyst [Unknown]
  - Prostatitis [Unknown]
  - Thyroid cyst [Unknown]
  - Psoriasis [Unknown]
